FAERS Safety Report 5437386-5 (Version None)
Quarter: 2007Q3

REPORT INFORMATION
  Report Type: 
  Country: None (occurrence: None)
  Receive Date: 20070831
  Receipt Date: 20070828
  Transmission Date: 20080115
  Serious: Yes (Death)
  Sender: FDA-Public Use
  Company Number: US-MERCK-0708USA05268

PATIENT
  Age: 15 Year
  Sex: Male

DRUGS (1)
  1. SINGULAIR [Suspect]
     Indication: RHINITIS ALLERGIC
     Route: 048
     Dates: start: 20070625, end: 20070804

REACTIONS (4)
  - AGITATION [None]
  - COMPLETED SUICIDE [None]
  - PAIN IN EXTREMITY [None]
  - POOR QUALITY SLEEP [None]
